FAERS Safety Report 9201439 (Version 1)
Quarter: 2013Q1

REPORT INFORMATION
  Report Type: Spontaneous
  Country: US (occurrence: None)
  Receive Date: 20130327
  Receipt Date: 20130327
  Transmission Date: 20140127
  Serious: Yes (Life-Threatening)
  Sender: FDA-Public Use
  Company Number: MERCK1302USA002554

PATIENT
  Age: 84 Year
  Sex: Male

DRUGS (1)
  1. BCG LIVE [Suspect]

REACTIONS (9)
  - Mycotic aneurysm [None]
  - Bovine tuberculosis [None]
  - Anaemia [None]
  - Muscle atrophy [None]
  - Cachexia [None]
  - Hepatitis [None]
  - Mycobacterium tuberculosis complex test positive [None]
  - Duodenitis [None]
  - Ileitis [None]
